FAERS Safety Report 8085053-4 (Version None)
Quarter: 2012Q1

REPORT INFORMATION
  Report Type: 
  Country: None (occurrence: None)
  Receive Date: 20120128
  Receipt Date: 20110314
  Transmission Date: 20120608
  Serious: No
  Sender: FDA-Public Use
  Company Number: US-ABBOTT-11P-163-0711217-00

PATIENT
  Age: 74 Year
  Sex: Female

DRUGS (11)
  1. METHOTREXATE [Concomitant]
     Indication: RHEUMATOID ARTHRITIS
     Dosage: 8 TABS WEEKLY
  2. FOLIC ACID [Concomitant]
     Indication: PRODUCT USED FOR UNKNOWN INDICATION
  3. HUMIRA [Suspect]
     Indication: RHEUMATOID ARTHRITIS
     Dates: start: 20110201
  4. PREDNISONE TAB [Concomitant]
     Indication: ARTHRITIS
  5. ENTERCORT [Concomitant]
     Indication: PRODUCT USED FOR UNKNOWN INDICATION
  6. FOSAMAX [Concomitant]
     Indication: BONE DENSITY ABNORMAL
     Dosage: 70 MG WEEKLY
  7. HYDROXICLORIQUINE [Concomitant]
     Indication: ARTHRITIS
  8. WELCHOL [Concomitant]
     Indication: IRRITABLE BOWEL SYNDROME
  9. IMODIUM [Concomitant]
     Indication: IRRITABLE BOWEL SYNDROME
  10. CITRACAL [Concomitant]
     Indication: PRODUCT USED FOR UNKNOWN INDICATION
     Dosage: 3 TABS DAILY
  11. VITAMINS AND SUPPLEMENTS [Concomitant]
     Indication: PRODUCT USED FOR UNKNOWN INDICATION

REACTIONS (2)
  - PARAESTHESIA [None]
  - BURNING SENSATION [None]
